FAERS Safety Report 6860129 (Version 2)
Quarter: 2013Q2

REPORT INFORMATION
  Report Type: Spontaneous
  Country: US (occurrence: US)
  Receive Date: 20081218
  Receipt Date: 20130506
  Transmission Date: 20140414
  Serious: No
  Sender: FDA-Public Use
  Company Number: US-ASTRAZENECA-2008UW21138

PATIENT
  Age: 77 Year
  Sex: Female
  Weight: 52.2 kg

DRUGS (9)
  1. CRESTOR [Suspect]
     Indication: BLOOD CHOLESTEROL INCREASED
     Route: 048
     Dates: start: 200809, end: 200809
  2. CRESTOR [Suspect]
     Indication: BLOOD CHOLESTEROL INCREASED
     Route: 048
  3. CRESTOR [Suspect]
     Indication: BLOOD CHOLESTEROL INCREASED
     Route: 048
  4. ATENOLOL [Suspect]
     Route: 065
  5. HYDROCHLOROTHIAZIDE [Concomitant]
  6. PAROXETINE [Concomitant]
     Indication: PANIC ATTACK
  7. PAXIL [Concomitant]
  8. LORAZEPAM [Concomitant]
  9. FISH OIL [Concomitant]

REACTIONS (7)
  - Eating disorder symptom [Recovered/Resolved]
  - Diarrhoea [Recovered/Resolved]
  - Vomiting [Recovered/Resolved]
  - Fatigue [Recovered/Resolved]
  - Dizziness [Recovered/Resolved]
  - Nausea [Recovered/Resolved]
  - Headache [Recovered/Resolved]
